FAERS Safety Report 5521770-5 (Version None)
Quarter: 2007Q4

REPORT INFORMATION
  Report Type: 
  Country: None (occurrence: None)
  Receive Date: 20071120
  Receipt Date: 20071108
  Transmission Date: 20080405
  Serious: Yes (Other)
  Sender: FDA-Public Use
  Company Number: NO-ROCHE-493309

PATIENT
  Age: 46 Year
  Sex: Female

DRUGS (1)
  1. ROACCUTAN [Suspect]
     Dosage: DOSAGE REGIMEN REPORTED AS 2 OR 3 PER DAY DAY.
     Route: 048
     Dates: start: 20060130, end: 20060425

REACTIONS (8)
  - DEPRESSION [None]
  - HAIR TEXTURE ABNORMAL [None]
  - MUSCULOSKELETAL PAIN [None]
  - MUSCULOSKELETAL STIFFNESS [None]
  - NAIL DISORDER [None]
  - SKIN WRINKLING [None]
  - SUICIDAL IDEATION [None]
  - VASODILATATION [None]
